FAERS Safety Report 9652184 (Version 2)
Quarter: 2013Q4

REPORT INFORMATION
  Report Type: Spontaneous
  Country: US (occurrence: None)
  Receive Date: 20131025
  Receipt Date: 20131206
  Transmission Date: 20140711
  Serious: Yes (Hospitalization)
  Sender: FDA-Public Use
  Company Number: SP07118

PATIENT
  Sex: Male

DRUGS (2)
  1. XIFAXAN [Suspect]
     Indication: HEPATIC ENCEPHALOPATHY
     Route: 048
  2. LACTULOSE [Concomitant]

REACTIONS (1)
  - Pneumonia [None]
